FAERS Safety Report 12403244 (Version 4)
Quarter: 2016Q4

REPORT INFORMATION
  Report Type: Spontaneous
  Country: US (occurrence: US)
  Receive Date: 20160404
  Receipt Date: 20161216
  Transmission Date: 20170207
  Serious: Yes (Other)
  Sender: FDA-Public Use
  Company Number: US-RELYPSA-RLY2016000217

PATIENT
  Age: 80 Year
  Sex: Female

DRUGS (19)
  1. FUROSEMIDE                         /00032602/ [Concomitant]
     Active Substance: FUROSEMIDE
  2. CLONAZEPAM. [Concomitant]
     Active Substance: CLONAZEPAM
  3. AMLODIPINE                         /00972402/ [Concomitant]
     Active Substance: AMLODIPINE BESYLATE
  4. LANTUS [Concomitant]
     Active Substance: INSULIN GLARGINE
  5. VELTASSA [Suspect]
     Active Substance: PATIROMER
     Indication: HYPERKALAEMIA
     Dosage: 8.4 G, QD
     Dates: start: 20160304, end: 20160313
  6. ASPIRIN                            /00002701/ [Concomitant]
     Active Substance: ASPIRIN
  7. FUSION PLUS [Concomitant]
     Active Substance: IRON\VITAMIN B
  8. ZETIA [Concomitant]
     Active Substance: EZETIMIBE
  9. ISOSORBIDE                         /07346401/ [Concomitant]
     Dosage: 8.4 G, UNK
     Dates: start: 20160304, end: 20160313
  10. TRAMADOL                           /00599202/ [Concomitant]
     Active Substance: TRAMADOL
  11. VALSARTAN. [Concomitant]
     Active Substance: VALSARTAN
  12. GLIMEPIRIDE. [Concomitant]
     Active Substance: GLIMEPIRIDE
  13. CATAPRES [Concomitant]
     Active Substance: CLONIDINE HYDROCHLORIDE
  14. NEBIVOLOL                          /01339102/ [Concomitant]
     Active Substance: NEBIVOLOL
  15. CLOPIDOGREL                        /01220704/ [Concomitant]
     Active Substance: CLOPIDOGREL BESILATE
  16. HYDRALAZINE [Concomitant]
     Active Substance: HYDRALAZINE HYDROCHLORIDE
  17. ACETAMINOPHEN. [Concomitant]
     Active Substance: ACETAMINOPHEN
  18. DEXILANT [Concomitant]
     Active Substance: DEXLANSOPRAZOLE
  19. ONGLYZA [Concomitant]
     Active Substance: SAXAGLIPTIN HYDROCHLORIDE

REACTIONS (4)
  - Suicidal ideation [Recovered/Resolved]
  - Arthralgia [Recovered/Resolved]
  - Depression [Recovered/Resolved]
  - Myalgia [Recovered/Resolved]

NARRATIVE: CASE EVENT DATE: 20160308
